FAERS Safety Report 19533270 (Version 2)
Quarter: 2021Q4

REPORT INFORMATION
  Report Type: Spontaneous
  Country: US (occurrence: US)
  Receive Date: 20210714
  Receipt Date: 20211021
  Transmission Date: 20220303
  Serious: Yes (Other)
  Sender: FDA-Public Use
  Company Number: US-BIOCODEX2-2021000866

PATIENT

DRUGS (8)
  1. DIACOMIT [Suspect]
     Active Substance: STIRIPENTOL
     Indication: Severe myoclonic epilepsy of infancy
     Dosage: 250MG, MIX 1 PACKET IN 25ML OF WATER.   WEEK 1: TAKE 100MG (10ML) TWICE A DAY.   WEEK 2: TAKE 200MG
     Route: 048
     Dates: start: 20210521
  2. DIACOMIT [Suspect]
     Active Substance: STIRIPENTOL
     Dosage: WEEK 3: MIX 2 PACKETS IN 50 ML OF WATER AND TAKE 300MG (30ML) TWICE A DAY.
     Route: 048
  3. DIACOMIT [Suspect]
     Active Substance: STIRIPENTOL
     Dosage: WEEK 4: TAKE 400MG (40ML) TWICE A DAY.
     Route: 048
  4. DIACOMIT [Suspect]
     Active Substance: STIRIPENTOL
     Dosage: WEEK 5 AND THEREFORE TAKE 500MG (50ML) BY MOUTH TWICE A DAY.
     Route: 048
  5. DIACOMIT [Suspect]
     Active Substance: STIRIPENTOL
     Dosage: 750 MG, QD
     Route: 048
  6. ONFI [Concomitant]
     Active Substance: CLOBAZAM
     Indication: Severe myoclonic epilepsy of infancy
     Route: 065
  7. FINTEPLA [Concomitant]
     Active Substance: FENFLURAMINE
     Indication: Product used for unknown indication
     Route: 065
  8. ZONISAMIDE [Concomitant]
     Active Substance: ZONISAMIDE
     Indication: Product used for unknown indication
     Route: 065

REACTIONS (2)
  - Seizure [Unknown]
  - Behaviour disorder [Unknown]
